FAERS Safety Report 4751288-9 (Version None)
Quarter: 2005Q3

REPORT INFORMATION
  Report Type: 
  Country: None (occurrence: None)
  Receive Date: 20050822
  Receipt Date: 20050816
  Transmission Date: 20060218
  Serious: Yes (Other)
  Sender: FDA-Public Use
  Company Number: 220072K05USA

PATIENT
  Age: 10 Year
  Sex: Male

DRUGS (1)
  1. SAIZEN [Suspect]
     Indication: GROWTH HORMONE DEFICIENCY
     Dosage: 2.2 MG, 6 IN 1 WEEKS
     Dates: start: 20050614

REACTIONS (2)
  - BENIGN INTRACRANIAL HYPERTENSION [None]
  - EYE HAEMORRHAGE [None]
